FAERS Safety Report 4740529-X (Version None)
Quarter: 2005Q3

REPORT INFORMATION
  Report Type: 
  Country: None (occurrence: None)
  Receive Date: 20050801
  Receipt Date: 20040803
  Transmission Date: 20060218
  Serious: No
  Sender: FDA-Public Use
  Company Number: 208210

PATIENT
  Age: 59 Year
  Sex: Female
  Weight: 66.2 kg

DRUGS (4)
  1. RITUXAN [Suspect]
     Indication: B-CELL LYMPHOMA
     Dosage: 375 MG/M2, 1/MONTH, INTRAVENOUS
     Route: 042
     Dates: end: 20040705
  2. FLUDARABINE PHOSPHATE [Concomitant]
  3. BENADRYL [Concomitant]
  4. DECADRON [Concomitant]

REACTIONS (2)
  - BONE MARROW DEPRESSION [None]
  - BONE MARROW DISORDER [None]
